APPROVED DRUG PRODUCT: TRIAMTERENE AND HYDROCHLOROTHIAZIDE
Active Ingredient: HYDROCHLOROTHIAZIDE; TRIAMTERENE
Strength: 25MG;50MG
Dosage Form/Route: CAPSULE;ORAL
Application: A071737 | Product #001
Applicant: VITARINE PHARMACEUTICALS INC
Approved: Feb 12, 1988 | RLD: No | RS: No | Type: DISCN